FAERS Safety Report 14305763 (Version 2)
Quarter: 2018Q1

REPORT INFORMATION
  Report Type: Report from Study
  Country: US (occurrence: US)
  Receive Date: 20171219
  Receipt Date: 20180202
  Transmission Date: 20180509
  Serious: Yes (Other)
  Sender: FDA-Public Use
  Company Number: US-ALLERGAN-1771681US

PATIENT
  Age: 71 Year
  Sex: Male

DRUGS (4)
  1. PREDNISOLONE 10MG/ML SUS (6294X) [Suspect]
     Active Substance: PREDNISOLONE
     Indication: INFECTION PROPHYLAXIS
     Dosage: 1 GTT, TID
     Route: 047
     Dates: start: 201603
  2. PREDNISOLONE 10MG/ML SUS (6294X) [Suspect]
     Active Substance: PREDNISOLONE
     Dosage: 1 GTT, TID
     Route: 047
     Dates: start: 201604
  3. PREDNISOLONE 10MG/ML SUS (6294X) [Suspect]
     Active Substance: PREDNISOLONE
     Dosage: 1 GTT, QD
     Route: 047
     Dates: start: 201610
  4. PREDNISOLONE 10MG/ML SUS (6294X) [Suspect]
     Active Substance: PREDNISOLONE
     Dosage: 1 GTT, QD

REACTIONS (3)
  - Corneal transplant [Unknown]
  - Intraocular pressure increased [Not Recovered/Not Resolved]
  - Off label use [Unknown]

NARRATIVE: CASE EVENT DATE: 2017
